FAERS Safety Report 8129734-2 (Version None)
Quarter: 2012Q1

REPORT INFORMATION
  Report Type: 
  Country: None (occurrence: None)
  Receive Date: 20120210
  Receipt Date: 20120202
  Transmission Date: 20120608
  Serious: No
  Sender: FDA-Public Use
  Company Number: US-PFIZER INC-2012033413

PATIENT
  Sex: Female

DRUGS (1)
  1. LO/OVRAL-28 [Suspect]

REACTIONS (3)
  - METRORRHAGIA [None]
  - HEADACHE [None]
  - MENORRHAGIA [None]
